FAERS Safety Report 4810290-9 (Version None)
Quarter: 2005Q4

REPORT INFORMATION
  Report Type: 
  Country: None (occurrence: None)
  Receive Date: 20051024
  Receipt Date: 20051011
  Transmission Date: 20060501
  Serious: Yes (Death)
  Sender: FDA-Public Use
  Company Number: A-CH2005-10790

PATIENT
  Age: 56 Year

DRUGS (1)
  1. TRACLEER [Suspect]
     Indication: SYSTEMIC SCLEROSIS
     Dosage: 125 MG, BID ORAL; 62.5 MG, BID, ORAL
     Route: 048

REACTIONS (1)
  - DEATH [None]
